FAERS Safety Report 8605154-9 (Version None)
Quarter: 2012Q3

REPORT INFORMATION
  Report Type: 
  Country: None (occurrence: None)
  Receive Date: 20120820
  Receipt Date: 20120815
  Transmission Date: 20120928
  Serious: Yes (Other)
  Sender: FDA-Public Use
  Company Number: CO-PFIZER INC-2012159468

PATIENT
  Age: 60 Year
  Sex: Female

DRUGS (4)
  1. LEVOTHYROXINE SODIUM [Concomitant]
     Indication: THYROID DISORDER
     Dosage: 100 MG, EVERY OTHER DAY
     Route: 048
     Dates: start: 20040101
  2. EFFEXOR [Suspect]
     Indication: DEPRESSION
     Dosage: 150 MG, 1X/DAY
     Route: 048
     Dates: start: 20060101
  3. CLONAZEPAM [Concomitant]
     Indication: DEPRESSION
     Dosage: 2 MG, AS NEEDED
     Route: 048
     Dates: start: 20060101
  4. SYNTHROID [Concomitant]
     Indication: THYROID DISORDER
     Dosage: 25 MG, EVERY OTHER DAY
     Route: 048
     Dates: start: 20040101

REACTIONS (5)
  - APATHY [None]
  - SOCIAL AVOIDANT BEHAVIOUR [None]
  - PAIN [None]
  - SCHIZOPHRENIA [None]
  - DRUG INEFFECTIVE [None]
